FAERS Safety Report 8596000-0 (Version None)
Quarter: 2012Q3

REPORT INFORMATION
  Report Type: 
  Country: None (occurrence: None)
  Receive Date: 20120807
  Receipt Date: 20120807
  Transmission Date: 20120928
  Serious: Yes (Disabling)
  Sender: FDA-Public Use
  Company Number: None

PATIENT
  Age: 6 Year
  Sex: Female

DRUGS (2)
  1. FLUOCINOLONE ACETONIDE [Suspect]
     Dosage: TOPICAL QD-BID PRN
     Route: 061
     Dates: start: 20120601, end: 20120701
  2. LEVOCETIRIZINE DIHYDROCHLORIDE [Concomitant]

REACTIONS (5)
  - BURNING SENSATION [None]
  - PRODUCT SUBSTITUTION ISSUE [None]
  - CONDITION AGGRAVATED [None]
  - PRURITUS [None]
  - ECZEMA [None]
